FAERS Safety Report 4736808-2 (Version None)
Quarter: 2005Q3

REPORT INFORMATION
  Report Type: 
  Country: None (occurrence: None)
  Receive Date: 20050805
  Receipt Date: 20050722
  Transmission Date: 20060218
  Serious: Yes (Hospitalization, Other)
  Sender: FDA-Public Use
  Company Number: 2005106058

PATIENT
  Age: 62 Year
  Sex: Female
  Weight: 73.4827 kg

DRUGS (6)
  1. NORVASC [Suspect]
     Indication: HYPERTENSION
     Dosage: 20 MG (10 MG, 2 IN 1 D), ORAL
     Route: 048
     Dates: start: 20040101
  2. ANTIBIOTICS (ANTIBIOTICS) [Suspect]
     Indication: ILL-DEFINED DISORDER
     Dates: end: 20050101
  3. ATENOLOL [Concomitant]
  4. HYDROCHLOROTHIAZIDE [Concomitant]
  5. PROTONIX [Concomitant]
  6. AMITRIPTYLINE HCL [Concomitant]

REACTIONS (8)
  - DIVERTICULITIS [None]
  - DRUG INEFFECTIVE [None]
  - GASTROINTESTINAL DISORDER [None]
  - HAEMORRHOIDS [None]
  - INFECTION [None]
  - IRRITABLE BOWEL SYNDROME [None]
  - PERIUMBILICAL ABSCESS [None]
  - POST PROCEDURAL COMPLICATION [None]
